FAERS Safety Report 10621431 (Version 4)
Quarter: 2015Q2

REPORT INFORMATION
  Report Type: Report from Study
  Country: IN (occurrence: IN)
  Receive Date: 20141203
  Receipt Date: 20150423
  Transmission Date: 20150821
  Serious: Yes (Disabling)
  Sender: FDA-Public Use
  Company Number: IN-ROCHE-1497485

PATIENT
  Age: 55 Year
  Sex: Female
  Weight: 60 kg

DRUGS (25)
  1. ARACHITOL [Concomitant]
     Route: 030
     Dates: start: 20130318, end: 20130608
  2. ARACHITOL [Concomitant]
     Route: 030
     Dates: start: 20130121, end: 20130317
  3. XTRACAL [Concomitant]
     Route: 048
     Dates: start: 20121128, end: 201302
  4. ZYCEL [Concomitant]
     Route: 048
     Dates: start: 20121128, end: 20121208
  5. RETOZ [Concomitant]
     Route: 048
     Dates: start: 20140210, end: 20140224
  6. NUCOXIA [Concomitant]
     Active Substance: ETORICOXIB
     Route: 048
     Dates: start: 20130318, end: 20140209
  7. CEFTUM (INDIA) [Concomitant]
     Route: 048
     Dates: start: 20121128, end: 20121208
  8. RAZO [Concomitant]
     Route: 048
     Dates: start: 20120509, end: 20120927
  9. RAZO-D [Concomitant]
     Route: 048
     Dates: start: 20120928
  10. LOSAR (INDIA) [Concomitant]
     Route: 048
     Dates: start: 20130121, end: 20140209
  11. TOCILIZUMAB [Suspect]
     Active Substance: TOCILIZUMAB
     Indication: RHEUMATOID ARTHRITIS
     Dosage: DATE OF THE LAST DOSE OF TOCILIZUMAB PRIOR TO AE ONSET: 29/SEP/2014
     Route: 042
     Dates: start: 20120928
  12. METHOTREXATE [Concomitant]
     Active Substance: METHOTREXATE
     Indication: RHEUMATOID ARTHRITIS
     Route: 048
     Dates: start: 20120509
  13. HYDROXYCHLOROQUINE [Concomitant]
     Active Substance: HYDROXYCHLOROQUINE
     Indication: RHEUMATOID ARTHRITIS
     Route: 048
     Dates: start: 20120509
  14. PARACETAMOL [Concomitant]
     Active Substance: ACETAMINOPHEN
     Route: 048
     Dates: start: 20121128, end: 20121208
  15. RETOZ [Concomitant]
     Route: 048
     Dates: start: 20140225
  16. LOSAR (INDIA) [Concomitant]
     Route: 048
     Dates: start: 20140210
  17. BRICAREX [Concomitant]
     Dosage: 2 TABLESPOONS
     Route: 048
     Dates: start: 20121029
  18. ARACHITOL [Concomitant]
     Route: 030
     Dates: start: 20130607, end: 20140209
  19. FOLIC ACID. [Concomitant]
     Active Substance: FOLIC ACID
     Indication: RHEUMATOID ARTHRITIS
     Route: 048
     Dates: start: 20120509
  20. NUCOXIA [Concomitant]
     Active Substance: ETORICOXIB
     Route: 048
     Dates: start: 20120803, end: 20130317
  21. LOSAR (INDIA) [Concomitant]
     Route: 048
     Dates: start: 20120928, end: 20130120
  22. SHELCAL [Concomitant]
     Route: 048
     Dates: start: 20120509
  23. LOSAR (INDIA) [Concomitant]
     Indication: HYPERTENSION
     Route: 048
     Dates: start: 20120803, end: 20120927
  24. SULFAMETHOXAZOLE/TRIMETHOPRIM [Concomitant]
     Active Substance: SULFAMETHOXAZOLE\TRIMETHOPRIM
     Route: 048
     Dates: start: 20121009, end: 20121015
  25. LEVOFLOX [Concomitant]
     Route: 048
     Dates: start: 20121029

REACTIONS (2)
  - Vasculitis [Recovering/Resolving]
  - Skin ulcer [Recovering/Resolving]

NARRATIVE: CASE EVENT DATE: 20141016
